FAERS Safety Report 16618283 (Version 3)
Quarter: 2019Q3

REPORT INFORMATION
  Report Type: Report from Study
  Country: ES (occurrence: ES)
  Receive Date: 20190723
  Receipt Date: 20190809
  Transmission Date: 20191004
  Serious: Yes (Hospitalization)
  Sender: FDA-Public Use
  Company Number: ES-PFIZER INC-2019296647

PATIENT
  Age: 73 Year
  Sex: Female
  Weight: 70 kg

DRUGS (10)
  1. LEVOTIROXINA SODICA [Concomitant]
     Active Substance: LEVOTHYROXINE SODIUM
     Indication: PROPHYLAXIS
     Dosage: 100 MG, DAILY
     Route: 048
     Dates: start: 2013
  2. LISINOPRIL. [Concomitant]
     Active Substance: LISINOPRIL
     Indication: ADVERSE EVENT
     Dosage: UNK
     Route: 065
     Dates: start: 2011, end: 20190706
  3. DALTEPARINA [Concomitant]
     Indication: PROPHYLAXIS
     Dosage: 15000 IU, DAILY
     Route: 058
     Dates: start: 20190412
  4. PANTOPRAZOL [PANTOPRAZOLE] [Concomitant]
     Active Substance: PANTOPRAZOLE
     Indication: PROPHYLAXIS
     Dosage: UNK
     Route: 065
  5. TARDYFERON [Concomitant]
     Active Substance: FERROUS SULFATE
     Indication: ADVERSE EVENT
     Dosage: 80 MG, DAILY
     Route: 048
     Dates: start: 20190319
  6. SINVASTATINA [Concomitant]
     Active Substance: SIMVASTATIN
     Indication: ADVERSE EVENT
     Dosage: 10 MG, DAILY
     Route: 048
     Dates: start: 2009
  7. CALCIUM [Concomitant]
     Active Substance: CALCIUM
     Indication: ADVERSE EVENT
     Dosage: UNK
     Route: 065
  8. DALTEPARIN SODIUM [Suspect]
     Active Substance: DALTEPARIN SODIUM
     Indication: DEEP VEIN THROMBOSIS
     Dosage: 12500 IU, DAILY
     Route: 058
     Dates: start: 20190509, end: 20190723
  9. PARACETAMOL [Concomitant]
     Active Substance: ACETAMINOPHEN
     Indication: ADVERSE EVENT
     Dosage: 1 G, AS NEEDED
     Route: 048
     Dates: start: 20190412
  10. BILASTINA [Concomitant]
     Active Substance: BILASTINE
     Indication: PROPHYLAXIS
     Dosage: 20 MG, DAILY
     Route: 048
     Dates: start: 20190507

REACTIONS (3)
  - Pain [Recovered/Resolved]
  - Lumbar vertebral fracture [Not Recovered/Not Resolved]
  - Acute kidney injury [Recovered/Resolved]

NARRATIVE: CASE EVENT DATE: 20190705
